FAERS Safety Report 25193260 (Version 2)
Quarter: 2025Q2

REPORT INFORMATION
  Report Type: Report from Study
  Country: US (occurrence: US)
  Receive Date: 20250414
  Receipt Date: 20250501
  Transmission Date: 20250716
  Serious: Yes (Other)
  Sender: ABBVIE
  Company Number: US-ABBVIE-6220511

PATIENT
  Age: 63 Year
  Sex: Female
  Weight: 57 kg

DRUGS (4)
  1. LINZESS [Suspect]
     Active Substance: LINACLOTIDE
     Indication: Gastrointestinal hypomotility
     Dosage: FORM STRENGTH: 145 MILLIGRAM
     Route: 048
     Dates: start: 2022, end: 202504
  2. FENTANYL [Concomitant]
     Active Substance: FENTANYL
     Indication: Complex regional pain syndrome
     Route: 065
  3. GABAPENTIN [Concomitant]
     Active Substance: GABAPENTIN
     Indication: Complex regional pain syndrome
  4. LEVOTHYROXINE [Concomitant]
     Active Substance: LEVOTHYROXINE
     Indication: Product used for unknown indication

REACTIONS (7)
  - Cystocele [Recovering/Resolving]
  - Intestinal obstruction [Not Recovered/Not Resolved]
  - Bowel movement irregularity [Not Recovered/Not Resolved]
  - Female genital tract fistula [Recovering/Resolving]
  - Urinary tract infection [Not Recovered/Not Resolved]
  - Rectal prolapse [Recovering/Resolving]
  - Dolichocolon [Recovering/Resolving]

NARRATIVE: CASE EVENT DATE: 20220101
